FAERS Safety Report 22074490 (Version 3)
Quarter: 2023Q2

REPORT INFORMATION
  Report Type: Spontaneous
  Country: RO (occurrence: RO)
  Receive Date: 20230308
  Receipt Date: 20230412
  Transmission Date: 20230722
  Serious: Yes (Death, Life-Threatening, Hospitalization, Other)
  Sender: FDA-Public Use
  Company Number: RO-PFIZER INC-PV202300043871

PATIENT
  Age: 77 Year
  Sex: Male

DRUGS (22)
  1. METHYLPREDNISOLONE [Suspect]
     Active Substance: METHYLPREDNISOLONE
     Indication: Stevens-Johnson syndrome
     Dosage: 250 MG, DAILY
  2. METHYLPREDNISOLONE [Suspect]
     Active Substance: METHYLPREDNISOLONE
     Indication: COVID-19
  3. LINEZOLID [Suspect]
     Active Substance: LINEZOLID
     Indication: Stevens-Johnson syndrome
     Dosage: 1.2 G, DAILY
  4. LINEZOLID [Suspect]
     Active Substance: LINEZOLID
     Indication: COVID-19
  5. MEROPENEM [Suspect]
     Active Substance: MEROPENEM
     Indication: COVID-19
     Dosage: 4 G, DAILY
  6. MEROPENEM [Suspect]
     Active Substance: MEROPENEM
     Indication: Stevens-Johnson syndrome
  7. BILASTINE [Suspect]
     Active Substance: BILASTINE
     Indication: Stevens-Johnson syndrome
     Dosage: 20 MG, 2X/DAY
  8. BILASTINE [Suspect]
     Active Substance: BILASTINE
     Indication: COVID-19
  9. VITAMIN C [Suspect]
     Active Substance: ASCORBIC ACID
     Indication: Stevens-Johnson syndrome
     Dosage: 500 MG, 2X/DAY
     Route: 042
  10. VITAMIN C [Suspect]
     Active Substance: ASCORBIC ACID
     Indication: COVID-19
  11. CALCIUM GLUCONATE [Suspect]
     Active Substance: CALCIUM GLUCONATE
     Indication: Stevens-Johnson syndrome
     Dosage: 10 ML, 1X/DAY (94 MG/ML)
  12. TRETINOIN [Suspect]
     Active Substance: TRETINOIN
     Indication: Stevens-Johnson syndrome
     Dosage: UNK, 2X/DAY
     Route: 061
  13. GENTAMICIN [Suspect]
     Active Substance: GENTAMICIN
     Indication: Stevens-Johnson syndrome
     Dosage: UNK, 2X/DAY
     Route: 061
  14. HYDROCORTISONE [Suspect]
     Active Substance: HYDROCORTISONE
     Indication: Stevens-Johnson syndrome
     Dosage: 1 G, 2X/DAY
  15. HYDROCORTISONE [Suspect]
     Active Substance: HYDROCORTISONE
     Indication: COVID-19
  16. PETROLEUM JELLY [Suspect]
     Active Substance: PETROLATUM
     Indication: Stevens-Johnson syndrome
     Dosage: 100 G, 2X/DAY
  17. ENOXAPARIN SODIUM [Suspect]
     Active Substance: ENOXAPARIN SODIUM
     Indication: Stevens-Johnson syndrome
     Dosage: 0.6 MG, 1X/DAY
  18. ENOXAPARIN SODIUM [Suspect]
     Active Substance: ENOXAPARIN SODIUM
     Indication: COVID-19
  19. ACETAMINOPHEN [Suspect]
     Active Substance: ACETAMINOPHEN
     Indication: Stevens-Johnson syndrome
     Dosage: 500 MG
  20. ACETAMINOPHEN [Suspect]
     Active Substance: ACETAMINOPHEN
     Indication: COVID-19
  21. ACETYLCYSTEINE [Suspect]
     Active Substance: ACETYLCYSTEINE
     Indication: Stevens-Johnson syndrome
     Dosage: 600 MG, DAILY
  22. UREA [Suspect]
     Active Substance: UREA
     Indication: Stevens-Johnson syndrome
     Dosage: 5 G, 2X/DAY

REACTIONS (3)
  - Off label use [Fatal]
  - Acute respiratory failure [Fatal]
  - Metabolic acidosis [Fatal]
